FAERS Safety Report 6608868-5 (Version None)
Quarter: 2010Q1

REPORT INFORMATION
  Report Type: 
  Country: None (occurrence: None)
  Receive Date: 20100301
  Receipt Date: 20100219
  Transmission Date: 20100710
  Serious: Yes (Hospitalization)
  Sender: FDA-Public Use
  Company Number: US-ABBOTT-10P-163-0627684-00

PATIENT
  Sex: Female
  Weight: 227 kg

DRUGS (5)
  1. LUPRON DEPOT [Suspect]
     Indication: HAEMORRHAGE
     Dates: start: 20100201
  2. PROVERA [Concomitant]
     Indication: HAEMORRHAGE
  3. ALBUTEROL [Concomitant]
     Indication: ASTHMA
  4. MEDROL [Concomitant]
     Indication: ASTHMA
  5. NEXIUM [Concomitant]
     Indication: GASTROOESOPHAGEAL REFLUX DISEASE

REACTIONS (2)
  - HAEMORRHAGE [None]
  - MENORRHAGIA [None]
